FAERS Safety Report 7000763-5 (Version None)
Quarter: 2010Q3

REPORT INFORMATION
  Report Type: 
  Country: None (occurrence: None)
  Receive Date: 20100920
  Receipt Date: 20100604
  Transmission Date: 20110219
  Serious: Yes (Hospitalization, Other)
  Sender: FDA-Public Use
  Company Number: US-ASTRAZENECA-2007UW09238

PATIENT
  Age: 16574 Day
  Sex: Male
  Weight: 92.5 kg

DRUGS (20)
  1. SEROQUEL [Suspect]
     Indication: DEPRESSION
     Route: 048
     Dates: start: 19990101, end: 20000101
  2. SEROQUEL [Suspect]
     Indication: POST-TRAUMATIC STRESS DISORDER
     Route: 048
     Dates: start: 19990101, end: 20000101
  3. SEROQUEL [Suspect]
     Dosage: 50 MG - 300 MG EVERY DAY
     Route: 048
     Dates: start: 20000101, end: 20051001
  4. SEROQUEL [Suspect]
     Dosage: 50 MG - 300 MG EVERY DAY
     Route: 048
     Dates: start: 20000101, end: 20051001
  5. SEROQUEL [Suspect]
     Dosage: STRENGTH-  100MG  DOSE- 100-200 DAILY
     Route: 048
     Dates: start: 20021118
  6. SEROQUEL [Suspect]
     Dosage: STRENGTH-  100MG  DOSE- 100-200 DAILY
     Route: 048
     Dates: start: 20021118
  7. SEROQUEL [Suspect]
     Route: 048
     Dates: end: 20051231
  8. SEROQUEL [Suspect]
     Route: 048
     Dates: end: 20051231
  9. RISPERDAL [Suspect]
     Indication: DEPRESSION
     Dates: start: 19940101, end: 19950101
  10. RISPERDAL [Suspect]
     Indication: POST-TRAUMATIC STRESS DISORDER
     Dates: start: 19940101, end: 19950101
  11. RISPERDAL [Suspect]
     Dates: start: 19990101, end: 20000101
  12. RISPERDAL [Suspect]
     Dates: start: 19990101, end: 20000101
  13. ZYPREXA [Suspect]
     Indication: DEPRESSION
     Dates: start: 19960101, end: 19970101
  14. ZYPREXA [Suspect]
     Dates: start: 19990101, end: 20010101
  15. ZYPREXA [Suspect]
     Dosage: STRENGTH-  2 MG, 2.5 MG  DOSE- 2.5 MG-4 MG
     Dates: start: 19990818
  16. HALDOL [Concomitant]
  17. CELEXA [Concomitant]
     Indication: DEPRESSION
     Dosage: STRENGTH-  20MG, 40 MG  DOSE-  20-40 MG
     Route: 048
  18. NAPROXEN [Concomitant]
     Dates: start: 20030308
  19. CLONIDINE HCL [Concomitant]
     Dates: start: 20040207
  20. HYDROXYZINE HCL [Concomitant]
     Dates: start: 20050427

REACTIONS (10)
  - BLOOD TRIGLYCERIDES INCREASED [None]
  - DIABETES MELLITUS [None]
  - DIABETES MELLITUS INADEQUATE CONTROL [None]
  - HYPOGLYCAEMIA [None]
  - INTENTIONAL OVERDOSE [None]
  - OBESITY [None]
  - PSYCHOTIC DISORDER [None]
  - SUICIDE ATTEMPT [None]
  - TYPE 1 DIABETES MELLITUS [None]
  - VISION BLURRED [None]
